FAERS Safety Report 7920808-5 (Version None)
Quarter: 2011Q4

REPORT INFORMATION
  Report Type: 
  Country: None (occurrence: None)
  Receive Date: 20111117
  Receipt Date: 20111107
  Transmission Date: 20120403
  Serious: Yes (Death)
  Sender: FDA-Public Use
  Company Number: IT-MILLENNIUM PHARMACEUTICALS, INC.-2011-05519

PATIENT

DRUGS (2)
  1. VELCADE [Suspect]
     Indication: PRIMARY AMYLOIDOSIS
     Dosage: UNK
  2. DEXAMETHASONE [Suspect]
     Indication: PRIMARY AMYLOIDOSIS
     Dosage: UNK

REACTIONS (1)
  - DEATH [None]
